FAERS Safety Report 24404443 (Version 4)
Quarter: 2025Q1

REPORT INFORMATION
  Report Type: Spontaneous
  Country: AT (occurrence: AT)
  Receive Date: 20241007
  Receipt Date: 20250224
  Transmission Date: 20250409
  Serious: Yes (Hospitalization, Other)
  Sender: SANDOZ
  Company Number: AT-AMGEN-AUTNI2022094016

PATIENT
  Age: 37 Year
  Sex: Female

DRUGS (250)
  1. ARANESP [Suspect]
     Active Substance: DARBEPOETIN ALFA
     Dosage: 150 UG, ONCE EVERY 1 MO
     Route: 058
     Dates: start: 20161201, end: 201701
  2. ARANESP [Suspect]
     Active Substance: DARBEPOETIN ALFA
     Indication: Anaemia prophylaxis
     Dosage: 150 UG, ONCE EVERY 1 WK
     Route: 058
     Dates: start: 20161201, end: 201701
  3. CAPECITABINE [Suspect]
     Active Substance: CAPECITABINE
     Route: 048
     Dates: start: 20210430
  4. CAPECITABINE [Suspect]
     Active Substance: CAPECITABINE
     Route: 048
     Dates: start: 20210929, end: 20220114
  5. CAPECITABINE [Suspect]
     Active Substance: CAPECITABINE
     Route: 048
     Dates: start: 20210904, end: 20220114
  6. CAPECITABINE [Suspect]
     Active Substance: CAPECITABINE
     Route: 048
     Dates: start: 20220204
  7. CAPECITABINE [Suspect]
     Active Substance: CAPECITABINE
     Indication: HER2 positive breast cancer
     Dosage: 2000 MG, QD (1000 MG, 2/DAY)
     Route: 048
     Dates: start: 20210404, end: 20220114
  8. CAPECITABINE [Suspect]
     Active Substance: CAPECITABINE
     Dosage: 2000 MG, QD (1000 MG, 2/DAY)
     Route: 048
     Dates: start: 20220204, end: 20220930
  9. CAPECITABINE [Suspect]
     Active Substance: CAPECITABINE
     Route: 048
     Dates: start: 20210430, end: 20210903
  10. CAPECITABINE [Suspect]
     Active Substance: CAPECITABINE
     Indication: Breast cancer metastatic
     Route: 048
     Dates: start: 20210904, end: 20210927
  11. CAPECITABINE [Suspect]
     Active Substance: CAPECITABINE
     Route: 048
     Dates: start: 20220930, end: 20221024
  12. CYCLOPHOSPHAMIDE [Suspect]
     Active Substance: CYCLOPHOSPHAMIDE
     Indication: Breast cancer metastatic
     Route: 042
     Dates: start: 20161005
  13. CYTOXAN [Suspect]
     Active Substance: CYCLOPHOSPHAMIDE
     Indication: HER2 positive breast cancer
     Dosage: 500 MICROGRAM/SQ. METER, QD
     Route: 042
     Dates: start: 20161005, end: 20161005
  14. CYTOXAN [Suspect]
     Active Substance: CYCLOPHOSPHAMIDE
     Indication: Breast cancer metastatic
     Route: 042
     Dates: start: 20161005
  15. DOCETAXEL [Suspect]
     Active Substance: DOCETAXEL
     Dosage: 100 MG/M2, ONCE EVERY 3 WK
     Route: 042
     Dates: start: 20161201, end: 20161222
  16. DOCETAXEL [Suspect]
     Active Substance: DOCETAXEL
     Dosage: 100 MG/M2, ONCE EVERY 3 WK
     Route: 042
     Dates: start: 20170112, end: 20170202
  17. DOCETAXEL [Suspect]
     Active Substance: DOCETAXEL
     Indication: Breast cancer metastatic
     Dosage: 75 MG/M2, ONCE EVERY 3 WK
     Route: 042
     Dates: start: 20161020, end: 20161020
  18. DOCETAXEL [Suspect]
     Active Substance: DOCETAXEL
     Dosage: 75 MG/M2, ONCE EVERY 3 WK
     Route: 048
     Dates: start: 20161111, end: 20161111
  19. DOCETAXEL [Suspect]
     Active Substance: DOCETAXEL
     Indication: Breast cancer metastatic
     Dosage: 100 UG/M2, ONCE EVERY 3 WK
     Route: 042
     Dates: start: 20161201, end: 20161222
  20. DOCETAXEL [Suspect]
     Active Substance: DOCETAXEL
     Indication: HER2 positive breast cancer
     Dosage: 100 UG/M2, ONCE EVERY 3 WK (DATE OF LAST ADMINISTARTION: 02/FEB/2017)
     Route: 042
     Dates: start: 20170112, end: 20170202
  21. DOCETAXEL [Suspect]
     Active Substance: DOCETAXEL
     Dosage: 75 UG/M2, ONCE EVERY 3 WK
     Route: 042
     Dates: start: 20161020, end: 20161020
  22. DOCETAXEL [Suspect]
     Active Substance: DOCETAXEL
     Dosage: 75 UG/M2, ONCE EVERY 3 WK
     Route: 042
     Dates: start: 20161111, end: 20161111
  23. ELLENCE [Suspect]
     Active Substance: EPIRUBICIN HYDROCHLORIDE
     Indication: HER2 positive breast cancer
     Route: 042
     Dates: start: 20161005, end: 20161005
  24. ELLENCE [Suspect]
     Active Substance: EPIRUBICIN HYDROCHLORIDE
     Indication: Breast cancer metastatic
     Route: 065
  25. ENHERTU [Suspect]
     Active Substance: FAM-TRASTUZUMAB DERUXTECAN-NXKI
     Indication: HER2 positive breast cancer
     Dosage: 4.4 MG/KG, ONCE EVERY 3 WK
     Route: 042
     Dates: start: 20230811
  26. ENHERTU [Suspect]
     Active Substance: FAM-TRASTUZUMAB DERUXTECAN-NXKI
     Dosage: 4.4 MG/KG, ONCE EVERY 3 WK
     Route: 042
     Dates: start: 20221202, end: 20230714
  27. ENHERTU [Suspect]
     Active Substance: FAM-TRASTUZUMAB DERUXTECAN-NXKI
     Dosage: 4.4 MG/KG, ONCE EVERY 3 WK
     Route: 042
     Dates: start: 20221202, end: 20230714
  28. ENHERTU [Suspect]
     Active Substance: FAM-TRASTUZUMAB DERUXTECAN-NXKI
     Dosage: 4.4 MG/KG, ONCE EVERY 3 WK
     Route: 042
     Dates: start: 20221202, end: 20230714
  29. ENHERTU [Suspect]
     Active Substance: FAM-TRASTUZUMAB DERUXTECAN-NXKI
     Dosage: 4.4 MG/KG, ONCE EVERY 3 WK
     Route: 042
     Dates: start: 20221202, end: 20230714
  30. ENHERTU [Suspect]
     Active Substance: FAM-TRASTUZUMAB DERUXTECAN-NXKI
     Dosage: 4.4 MG/KG, ONCE EVERY 3 WK
     Route: 042
     Dates: start: 20230811
  31. ENHERTU [Suspect]
     Active Substance: FAM-TRASTUZUMAB DERUXTECAN-NXKI
     Dosage: 4.4 MG/KG, ONCE EVERY 3 WK
     Route: 042
     Dates: start: 20230811
  32. ENHERTU [Suspect]
     Active Substance: FAM-TRASTUZUMAB DERUXTECAN-NXKI
     Dosage: 4.4 MG/KG, ONCE EVERY 3 WK
     Route: 042
     Dates: start: 20230811
  33. ENHERTU [Suspect]
     Active Substance: FAM-TRASTUZUMAB DERUXTECAN-NXKI
     Dosage: 5.4 MG/KG, ONCE EVERY 3 WK
     Route: 042
     Dates: start: 20220924, end: 20221114
  34. ENHERTU [Suspect]
     Active Substance: FAM-TRASTUZUMAB DERUXTECAN-NXKI
     Dosage: 5.4 MG/KG, ONCE EVERY 3 WK
     Route: 042
     Dates: start: 20220924, end: 20221114
  35. ENHERTU [Suspect]
     Active Substance: FAM-TRASTUZUMAB DERUXTECAN-NXKI
     Dosage: 5.4 MG/KG, ONCE EVERY 3 WK
     Route: 042
     Dates: start: 20220924, end: 20221114
  36. ENHERTU [Suspect]
     Active Substance: FAM-TRASTUZUMAB DERUXTECAN-NXKI
     Dosage: 5.4 MG/KG, ONCE EVERY 3 WK
     Route: 042
     Dates: start: 20220924, end: 20221114
  37. HERCEPTIN [Suspect]
     Active Substance: TRASTUZUMAB
     Indication: Breast cancer metastatic
     Dosage: 6 UG/KG, ONCE EVERY 3 WK
     Route: 042
     Dates: start: 20190906, end: 20210927
  38. HERCEPTIN [Suspect]
     Active Substance: TRASTUZUMAB
     Dosage: 6 UG/KG, ONCE EVERY 3 WK
     Route: 042
     Dates: start: 20170202, end: 20181008
  39. HERCEPTIN [Suspect]
     Active Substance: TRASTUZUMAB
     Dosage: 6 UG/KG, ONCE EVERY 3 WK
     Route: 042
     Dates: start: 20170227, end: 20180108
  40. HERCEPTIN [Suspect]
     Active Substance: TRASTUZUMAB
     Dosage: 6 UG/KG, ONCE EVERY 3 WK
     Route: 042
     Dates: start: 20190906
  41. HERCEPTIN [Suspect]
     Active Substance: TRASTUZUMAB
     Dosage: 6 UG/KG, ONCE EVERY 3 WK (DATE OF LAST ADMINISTARTION: 30/SEP/2022)
     Route: 042
     Dates: start: 20210929, end: 20220930
  42. HERCEPTIN [Suspect]
     Active Substance: TRASTUZUMAB
     Indication: HER2 positive breast cancer
     Dosage: 8 UG/KG, ONCE EVERY 3 WK
     Route: 042
     Dates: start: 20170112, end: 20170112
  43. HERCEPTIN [Suspect]
     Active Substance: TRASTUZUMAB
     Dosage: 8 UG/KG, ONCE EVERY 3 WK
     Route: 042
     Dates: start: 20161020, end: 20170112
  44. KADCYLA [Suspect]
     Active Substance: ADO-TRASTUZUMAB EMTANSINE
     Indication: Product used for unknown indication
     Route: 065
  45. LOPERAMIDE [Suspect]
     Active Substance: LOPERAMIDE
     Indication: Diarrhoea
     Route: 048
     Dates: start: 20171106, end: 20171127
  46. LOPERAMIDE [Suspect]
     Active Substance: LOPERAMIDE
     Route: 048
     Dates: start: 20171127
  47. TUCATINIB [Suspect]
     Active Substance: TUCATINIB
     Dosage: 600 MILLIGRAM, QD (300 MG)
     Route: 065
     Dates: end: 20210927
  48. TUCATINIB [Suspect]
     Active Substance: TUCATINIB
     Indication: HER2 positive breast cancer
     Dosage: 600 MILLIGRAM, QD (300 MG, 2/ DAY)
     Route: 065
     Dates: start: 20210929, end: 20221023
  49. PERTUZUMAB [Suspect]
     Active Substance: PERTUZUMAB
     Indication: Breast cancer metastatic
     Dosage: 420 MG, ONCE EVERY 3 WK
     Route: 042
     Dates: start: 20170227, end: 20180108
  50. PERTUZUMAB [Suspect]
     Active Substance: PERTUZUMAB
     Indication: HER2 positive breast cancer
     Dosage: 420 MG, ONCE EVERY 3 WK
     Route: 042
     Dates: start: 20170202, end: 20180108
  51. PERTUZUMAB [Suspect]
     Active Substance: PERTUZUMAB
     Dosage: 420 MG, ONCE EVERY 3 WK
     Route: 042
     Dates: start: 20170112, end: 20170112
  52. PERTUZUMAB [Suspect]
     Active Substance: PERTUZUMAB
     Dosage: 420 MG, ONCE EVERY 3 WK
     Route: 042
     Dates: start: 20190906, end: 20210409
  53. PERTUZUMAB [Suspect]
     Active Substance: PERTUZUMAB
     Dosage: 800 MG, ONCE EVERY 3 WK
     Route: 042
     Dates: start: 20161020
  54. TAXOTERE [Suspect]
     Active Substance: DOCETAXEL
     Dosage: 100 UG/M2, Q3W
     Route: 042
     Dates: start: 20161201, end: 20170202
  55. TAXOTERE [Suspect]
     Active Substance: DOCETAXEL
     Indication: Breast cancer metastatic
     Dosage: 75 UG/M2, ONCE EVERY 3 WK
     Route: 042
     Dates: start: 20161020, end: 20161020
  56. TAXOTERE [Suspect]
     Active Substance: DOCETAXEL
     Dosage: 75 UG/M2, ONCE EVERY 3 WK
     Route: 042
     Dates: start: 20161111, end: 20161111
  57. TRASTUZUMAB [Suspect]
     Active Substance: TRASTUZUMAB
     Indication: Breast cancer metastatic
     Dosage: 6 MG/KG, ONCE EVERY 3 WK
     Route: 042
     Dates: start: 20170227, end: 20170227
  58. TRASTUZUMAB [Suspect]
     Active Substance: TRASTUZUMAB
     Dosage: 6 MG/KG, ONCE EVERY 3 WK
     Route: 042
     Dates: start: 20190906, end: 20190906
  59. TRASTUZUMAB [Suspect]
     Active Substance: TRASTUZUMAB
     Dosage: 8 MG/KG, ONCE EVERY 3 WK
     Route: 042
     Dates: start: 20161020, end: 20161020
  60. TRASTUZUMAB [Suspect]
     Active Substance: TRASTUZUMAB
     Dosage: 8 MG/KG, ONCE EVERY 3 WK
     Route: 042
     Dates: start: 20170112, end: 20170112
  61. TRASTUZUMAB DERUXTECAN [Suspect]
     Active Substance: TRASTUZUMAB DERUXTECAN
     Dosage: 4.4 MG/KG, ONCE EVERY 3 WK
     Route: 042
     Dates: start: 20221202, end: 20230714
  62. TRASTUZUMAB DERUXTECAN [Suspect]
     Active Substance: TRASTUZUMAB DERUXTECAN
     Dosage: 4.4 MG/KG, ONCE EVERY 3 WK
     Route: 042
     Dates: start: 20230811
  63. TRASTUZUMAB DERUXTECAN [Suspect]
     Active Substance: TRASTUZUMAB DERUXTECAN
     Indication: HER2 positive breast cancer
     Dosage: 5.4 MG/KG, ONCE EVERY 3 WK
     Route: 042
     Dates: start: 20220924, end: 20221114
  64. TUCATINIB [Suspect]
     Active Substance: TUCATINIB
     Indication: Breast cancer metastatic
     Dosage: 300 MG, BID
     Route: 048
     Dates: start: 20210430, end: 20221023
  65. TUCATINIB [Suspect]
     Active Substance: TUCATINIB
     Indication: HER2 positive breast cancer
     Route: 048
     Dates: start: 20210929
  66. TUCATINIB [Suspect]
     Active Substance: TUCATINIB
     Route: 048
     Dates: start: 20210929
  67. TUKYSA [Suspect]
     Active Substance: TUCATINIB
     Indication: Breast cancer metastatic
     Dosage: 1200 MG, QD (300 MG, BID)
     Route: 048
     Dates: start: 20210430
  68. TUKYSA [Suspect]
     Active Substance: TUCATINIB
     Route: 048
     Dates: start: 20210929
  69. TUKYSA [Suspect]
     Active Substance: TUCATINIB
     Dosage: 600 MILLIGRAM, QD (300 MG)
     Route: 048
     Dates: start: 20210430, end: 20221023
  70. XGEVA [Suspect]
     Active Substance: DENOSUMAB
     Indication: Prophylaxis
     Dosage: 120 MG, ONCE EVERY 1 MO
     Route: 058
     Dates: start: 20161201
  71. AMOXICILLIN\CLAVULANATE POTASSIUM [Concomitant]
     Active Substance: AMOXICILLIN\CLAVULANATE POTASSIUM
     Route: 065
  72. AMOXICILLIN\CLAVULANATE POTASSIUM [Concomitant]
     Active Substance: AMOXICILLIN\CLAVULANATE POTASSIUM
     Route: 065
  73. AMOXICILLIN\CLAVULANATE POTASSIUM [Concomitant]
     Active Substance: AMOXICILLIN\CLAVULANATE POTASSIUM
     Route: 065
  74. AMOXICILLIN\CLAVULANATE POTASSIUM [Concomitant]
     Active Substance: AMOXICILLIN\CLAVULANATE POTASSIUM
     Route: 065
  75. AMOXICILLIN\CLAVULANATE POTASSIUM [Concomitant]
     Active Substance: AMOXICILLIN\CLAVULANATE POTASSIUM
     Indication: Product used for unknown indication
     Route: 065
  76. APREPITANT [Concomitant]
     Active Substance: APREPITANT
     Indication: Nausea
     Route: 065
     Dates: start: 20221202
  77. APREPITANT [Concomitant]
     Active Substance: APREPITANT
     Route: 065
     Dates: start: 20221123
  78. APREPITANT [Concomitant]
     Active Substance: APREPITANT
     Route: 065
     Dates: start: 20221123
  79. APREPITANT [Concomitant]
     Active Substance: APREPITANT
     Route: 065
     Dates: start: 20221123
  80. APREPITANT [Concomitant]
     Active Substance: APREPITANT
     Route: 065
     Dates: start: 20221123
  81. APREPITANT [Concomitant]
     Active Substance: APREPITANT
     Route: 065
     Dates: start: 20221202
  82. APREPITANT [Concomitant]
     Active Substance: APREPITANT
     Route: 065
     Dates: start: 20221202
  83. APREPITANT [Concomitant]
     Active Substance: APREPITANT
     Route: 065
     Dates: start: 20221202
  84. APREPITANT [Concomitant]
     Active Substance: APREPITANT
     Route: 065
     Dates: start: 20221202
  85. CALCIUM CARBONATE\VITAMIN D [Concomitant]
     Active Substance: CALCIUM CARBONATE\VITAMIN D
     Indication: Prophylaxis
     Dosage: 2 DOSAGE FORM, QD (1 DF TWICE DAILY)
     Route: 048
     Dates: start: 20161112
  86. CALCIUM CARBONATE\VITAMIN D [Concomitant]
     Active Substance: CALCIUM CARBONATE\VITAMIN D
     Dosage: 2 DOSAGE FORM, QD (1 DF TWICE DAILY)
     Route: 065
     Dates: start: 20161112
  87. CALCIUM CARBONATE\VITAMIN D [Concomitant]
     Active Substance: CALCIUM CARBONATE\VITAMIN D
     Dosage: 2 DOSAGE FORM, QD (1 DF TWICE DAILY)
     Route: 065
     Dates: start: 20161112
  88. CALCIUM CARBONATE\VITAMIN D [Concomitant]
     Active Substance: CALCIUM CARBONATE\VITAMIN D
     Dosage: 2 DOSAGE FORM, QD (1 DF TWICE DAILY)
     Route: 065
     Dates: start: 20161112
  89. CALCIUM CARBONATE\VITAMIN D [Concomitant]
     Active Substance: CALCIUM CARBONATE\VITAMIN D
     Dosage: 2 DOSAGE FORM, QD (1 DF TWICE DAILY)
     Route: 065
     Dates: start: 20161112
  90. CALCIUM CARBONATE\VITAMIN D [Concomitant]
     Active Substance: CALCIUM CARBONATE\VITAMIN D
     Route: 065
     Dates: start: 20161112
  91. CALCIUM CARBONATE\VITAMIN D [Concomitant]
     Active Substance: CALCIUM CARBONATE\VITAMIN D
     Route: 065
     Dates: start: 20161112
  92. CALCIUM CARBONATE\VITAMIN D [Concomitant]
     Active Substance: CALCIUM CARBONATE\VITAMIN D
     Route: 065
     Dates: start: 20161112
  93. CEOLAT [Concomitant]
     Indication: Prophylaxis of nausea and vomiting
     Route: 048
     Dates: start: 20161112, end: 201702
  94. CEOLAT [Concomitant]
     Indication: Nausea
     Route: 042
     Dates: start: 20161113
  95. CERNEVIT [Concomitant]
     Active Substance: VITAMINS
     Indication: Product used for unknown indication
     Route: 065
  96. AMOXICILLIN\CLAVULANATE POTASSIUM [Concomitant]
     Active Substance: AMOXICILLIN\CLAVULANATE POTASSIUM
     Indication: Product used for unknown indication
     Route: 048
     Dates: start: 20161212, end: 20161216
  97. BISOPROLOL FUMARATE [Concomitant]
     Active Substance: BISOPROLOL FUMARATE
     Indication: Prophylaxis
     Dosage: 1.25 MG, QD
     Route: 048
     Dates: start: 20161117, end: 20170226
  98. BISOPROLOL FUMARATE [Concomitant]
     Active Substance: BISOPROLOL FUMARATE
     Indication: Product used for unknown indication
     Dosage: 2.5 MG, BID
     Route: 048
     Dates: start: 20170227
  99. BISOPROLOL FUMARATE [Concomitant]
     Active Substance: BISOPROLOL FUMARATE
     Indication: Product used for unknown indication
     Dosage: 1.25 MG, QD
     Route: 048
     Dates: start: 20161117, end: 20170226
  100. BISOPROLOL FUMARATE [Concomitant]
     Active Substance: BISOPROLOL FUMARATE
     Indication: Prophylaxis
     Dosage: 1.25 MG, QD
     Route: 065
     Dates: start: 20161117, end: 20170226
  101. BISOPROLOL FUMARATE [Concomitant]
     Active Substance: BISOPROLOL FUMARATE
     Dosage: 1.25 MG, QD
     Route: 065
     Dates: start: 20161117, end: 20170226
  102. BISOPROLOL FUMARATE [Concomitant]
     Active Substance: BISOPROLOL FUMARATE
     Dosage: 1.25 MG, QD
     Route: 065
     Dates: start: 20161117, end: 20170226
  103. BISOPROLOL FUMARATE [Concomitant]
     Active Substance: BISOPROLOL FUMARATE
     Dosage: 1.25 MG, QD
     Route: 065
     Dates: start: 20161117, end: 20170226
  104. BISOPROLOL FUMARATE [Concomitant]
     Active Substance: BISOPROLOL FUMARATE
     Dosage: 2.5 MG, BID
     Route: 048
     Dates: start: 20170227
  105. BISOPROLOL FUMARATE [Concomitant]
     Active Substance: BISOPROLOL FUMARATE
     Dosage: 2.5 MG, BID
     Route: 065
     Dates: start: 20170227
  106. BISOPROLOL FUMARATE [Concomitant]
     Active Substance: BISOPROLOL FUMARATE
     Dosage: 2.5 MG, BID
     Route: 065
     Dates: start: 20170227
  107. BISOPROLOL FUMARATE [Concomitant]
     Active Substance: BISOPROLOL FUMARATE
     Dosage: 2.5 MG, BID
     Route: 065
     Dates: start: 20170227
  108. BISOPROLOL FUMARATE [Concomitant]
     Active Substance: BISOPROLOL FUMARATE
     Dosage: 2.5 MG, BID
     Route: 065
     Dates: start: 20170227
  109. DEXAMETHASONE [Concomitant]
     Active Substance: DEXAMETHASONE
     Dosage: 8 MG, QD
     Route: 048
     Dates: start: 20180817, end: 20180831
  110. DEXAMETHASONE [Concomitant]
     Active Substance: DEXAMETHASONE
     Dosage: 8 MG, QD
     Route: 065
     Dates: start: 20180817, end: 20180831
  111. DEXAMETHASONE [Concomitant]
     Active Substance: DEXAMETHASONE
     Dosage: 8 MG, QD
     Route: 065
     Dates: start: 20180817, end: 20180831
  112. DEXAMETHASONE [Concomitant]
     Active Substance: DEXAMETHASONE
     Indication: Headache
     Dosage: 8 MG, BID
     Route: 048
     Dates: start: 20180117, end: 20180122
  113. DEXAMETHASONE [Concomitant]
     Active Substance: DEXAMETHASONE
     Indication: Prophylaxis
     Dosage: 8 MG, BID
     Route: 048
     Dates: start: 20161202, end: 20161203
  114. DEXAMETHASONE [Concomitant]
     Active Substance: DEXAMETHASONE
     Dosage: 8 MG, BID
     Route: 065
     Dates: start: 20161202, end: 20161203
  115. DEXAMETHASONE [Concomitant]
     Active Substance: DEXAMETHASONE
     Dosage: 8 MG, BID
     Route: 065
     Dates: start: 20161202, end: 20161203
  116. DEXAMETHASONE [Concomitant]
     Active Substance: DEXAMETHASONE
     Dosage: 8 MG, BID
     Route: 065
     Dates: start: 20161202, end: 20161203
  117. DEXAMETHASONE [Concomitant]
     Active Substance: DEXAMETHASONE
     Dosage: 8 MG, BID
     Route: 065
     Dates: start: 20161202, end: 20161203
  118. DEXAMETHASONE [Concomitant]
     Active Substance: DEXAMETHASONE
     Dosage: 8 MG, BID
     Route: 065
     Dates: start: 20180117, end: 20180122
  119. DEXAMETHASONE [Concomitant]
     Active Substance: DEXAMETHASONE
     Dosage: 8 MG, BID
     Route: 065
     Dates: start: 20180117, end: 20180122
  120. DEXAMETHASONE [Concomitant]
     Active Substance: DEXAMETHASONE
     Dosage: 8 MG, BID
     Route: 065
     Dates: start: 20180117, end: 20180122
  121. DEXAMETHASONE [Concomitant]
     Active Substance: DEXAMETHASONE
     Dosage: 8 MG, BID
     Route: 065
     Dates: start: 20180117, end: 20180122
  122. DEXAMETHASONE [Concomitant]
     Active Substance: DEXAMETHASONE
     Route: 065
     Dates: start: 20161202, end: 20161203
  123. DEXAMETHASONE [Concomitant]
     Active Substance: DEXAMETHASONE
     Route: 065
     Dates: start: 20161202, end: 20161203
  124. DEXAMETHASONE [Concomitant]
     Active Substance: DEXAMETHASONE
     Route: 048
     Dates: start: 20180117, end: 20180122
  125. DEXAMETHASONE [Concomitant]
     Active Substance: DEXAMETHASONE
     Route: 065
     Dates: start: 20180117, end: 20180122
  126. DEXAMETHASONE [Concomitant]
     Active Substance: DEXAMETHASONE
     Route: 065
     Dates: start: 20180117, end: 20180122
  127. DEXAMETHASONE [Concomitant]
     Active Substance: DEXAMETHASONE
     Route: 065
     Dates: start: 20180117, end: 20180122
  128. DEXAMETHASONE [Concomitant]
     Active Substance: DEXAMETHASONE
     Route: 065
     Dates: start: 20180117, end: 20180122
  129. DEXAMETHASONE [Concomitant]
     Active Substance: DEXAMETHASONE
     Route: 065
     Dates: start: 20180117, end: 20180122
  130. DEXAMETHASONE [Concomitant]
     Active Substance: DEXAMETHASONE
     Route: 065
     Dates: start: 20221123, end: 20221215
  131. DEXAMETHASONE [Concomitant]
     Active Substance: DEXAMETHASONE
     Route: 065
     Dates: start: 20221123, end: 20221215
  132. DEXAMETHASONE [Concomitant]
     Active Substance: DEXAMETHASONE
     Route: 065
     Dates: start: 20221123, end: 20221215
  133. FENTANYL [Concomitant]
     Active Substance: FENTANYL
     Indication: Pain prophylaxis
     Dosage: 25 UG, TID
     Route: 062
     Dates: start: 201706
  134. LOPERAMIDE HYDROCHLORIDE [Concomitant]
     Active Substance: LOPERAMIDE HYDROCHLORIDE
     Indication: Diarrhoea
     Route: 048
     Dates: start: 20171127, end: 20171127
  135. LOPERAMIDE HYDROCHLORIDE [Concomitant]
     Active Substance: LOPERAMIDE HYDROCHLORIDE
     Route: 065
  136. ESOMEPRAZOLE [Concomitant]
     Active Substance: ESOMEPRAZOLE
     Indication: Product used for unknown indication
     Route: 065
     Dates: start: 20221123
  137. ESOMEPRAZOLE [Concomitant]
     Active Substance: ESOMEPRAZOLE
     Route: 065
     Dates: start: 20221123
  138. ESOMEPRAZOLE [Concomitant]
     Active Substance: ESOMEPRAZOLE
     Route: 065
     Dates: start: 20221123
  139. ESOMEPRAZOLE [Concomitant]
     Active Substance: ESOMEPRAZOLE
     Route: 065
     Dates: start: 20221123
  140. ESOMEPRAZOLE [Concomitant]
     Active Substance: ESOMEPRAZOLE
     Route: 065
     Dates: start: 20221123
  141. DEXAMETHASONE [Concomitant]
     Active Substance: DEXAMETHASONE
     Indication: Prophylaxis
     Dosage: 8 MG, BID
     Route: 048
     Dates: start: 20161202, end: 20161203
  142. DEXAMETHASONE [Concomitant]
     Active Substance: DEXAMETHASONE
     Dosage: 8 MG, BID
     Route: 048
     Dates: start: 20180117, end: 20180122
  143. DEXAMETHASONE [Concomitant]
     Active Substance: DEXAMETHASONE
     Route: 065
  144. CLOBAZAM [Concomitant]
     Active Substance: CLOBAZAM
     Indication: Epilepsy
     Route: 048
     Dates: start: 20220201
  145. SERTRALINE HYDROCHLORIDE [Concomitant]
     Active Substance: SERTRALINE HYDROCHLORIDE
     Indication: Depression
     Route: 048
     Dates: start: 201710
  146. SERTRALINE HYDROCHLORIDE [Concomitant]
     Active Substance: SERTRALINE HYDROCHLORIDE
     Indication: Depression
     Route: 048
     Dates: start: 20171016
  147. SERTRALINE HYDROCHLORIDE [Concomitant]
     Active Substance: SERTRALINE HYDROCHLORIDE
     Indication: Depression
     Route: 048
     Dates: start: 20171016
  148. SERTRALINE HYDROCHLORIDE [Concomitant]
     Active Substance: SERTRALINE HYDROCHLORIDE
     Indication: Product used for unknown indication
     Route: 048
     Dates: start: 20230714
  149. SERTRALINE HYDROCHLORIDE [Concomitant]
     Active Substance: SERTRALINE HYDROCHLORIDE
     Route: 048
     Dates: start: 20171016
  150. GLANDOMED [Concomitant]
     Indication: Product used for unknown indication
     Route: 061
     Dates: start: 20161208, end: 20161222
  151. GLANDOMED [Concomitant]
     Route: 065
     Dates: start: 20161208, end: 20161222
  152. GLANDOMED [Concomitant]
     Route: 065
     Dates: start: 20161208, end: 20161222
  153. GLANDOMED [Concomitant]
     Route: 065
     Dates: start: 20161208, end: 20161222
  154. GLANDOMED [Concomitant]
     Route: 065
     Dates: start: 20161208, end: 20161222
  155. HALCION [Concomitant]
     Active Substance: TRIAZOLAM
     Indication: Product used for unknown indication
     Route: 048
     Dates: start: 2016, end: 201610
  156. HALCION [Concomitant]
     Active Substance: TRIAZOLAM
     Indication: Sleep disorder
  157. HALCION [Concomitant]
     Active Substance: TRIAZOLAM
     Indication: Sleep disorder
  158. HALCION [Concomitant]
     Active Substance: TRIAZOLAM
     Indication: Sleep disorder
  159. HALDOL [Concomitant]
     Active Substance: HALOPERIDOL
     Indication: Prophylaxis of nausea and vomiting
     Dosage: 4 DROP, BID
     Route: 048
     Dates: start: 201702
  160. HYDROMORPHONE HYDROCHLORIDE [Concomitant]
     Active Substance: HYDROMORPHONE HYDROCHLORIDE
     Dosage: 1.3 MG
     Route: 048
     Dates: start: 201706, end: 20210309
  161. HYDROMORPHONE HYDROCHLORIDE [Concomitant]
     Active Substance: HYDROMORPHONE HYDROCHLORIDE
     Dosage: 2 MG (0.5 DAY)
     Route: 048
     Dates: start: 20210326, end: 20210409
  162. HYDROMORPHONE HYDROCHLORIDE [Concomitant]
     Active Substance: HYDROMORPHONE HYDROCHLORIDE
     Route: 048
     Dates: start: 20190816, end: 20210326
  163. HYDROMORPHONE HYDROCHLORIDE [Concomitant]
     Active Substance: HYDROMORPHONE HYDROCHLORIDE
     Dosage: 4 MG, BID
     Route: 048
     Dates: start: 20210410
  164. HYDROMORPHONE HYDROCHLORIDE [Concomitant]
     Active Substance: HYDROMORPHONE HYDROCHLORIDE
     Indication: Pain prophylaxis
     Route: 065
     Dates: start: 20210309
  165. HYDROMORPHONE HYDROCHLORIDE [Concomitant]
     Active Substance: HYDROMORPHONE HYDROCHLORIDE
     Route: 065
     Dates: start: 20210410
  166. IBUPROFEN [Concomitant]
     Active Substance: IBUPROFEN
     Indication: Product used for unknown indication
     Route: 065
  167. IBUPROFEN [Concomitant]
     Active Substance: IBUPROFEN
     Route: 065
  168. IBUPROFEN [Concomitant]
     Active Substance: IBUPROFEN
     Route: 065
  169. IBUPROFEN [Concomitant]
     Active Substance: IBUPROFEN
     Route: 065
  170. IBUPROFEN [Concomitant]
     Active Substance: IBUPROFEN
     Route: 065
  171. IMODIUM [Concomitant]
     Active Substance: LOPERAMIDE HYDROCHLORIDE
     Indication: Diarrhoea
     Route: 048
     Dates: start: 20171106, end: 20171127
  172. IMODIUM [Concomitant]
     Active Substance: LOPERAMIDE HYDROCHLORIDE
     Route: 065
  173. KCL [Concomitant]
     Active Substance: POTASSIUM CHLORIDE
     Indication: Prophylaxis
     Dosage: 1200 MG, BID
     Route: 048
     Dates: start: 20161117, end: 201702
  174. KCL [Concomitant]
     Active Substance: POTASSIUM CHLORIDE
     Dosage: 1200 MG, BID
     Route: 065
     Dates: start: 20161117, end: 201702
  175. KCL [Concomitant]
     Active Substance: POTASSIUM CHLORIDE
     Dosage: 1200 MG, BID
     Route: 065
     Dates: start: 20161117, end: 201702
  176. KCL [Concomitant]
     Active Substance: POTASSIUM CHLORIDE
     Dosage: 1200 MG, BID
     Route: 065
     Dates: start: 20161117, end: 201702
  177. KCL [Concomitant]
     Active Substance: POTASSIUM CHLORIDE
     Dosage: 1200 MG, BID
     Route: 065
     Dates: start: 20161117, end: 201702
  178. LASIX [Concomitant]
     Active Substance: FUROSEMIDE
     Indication: Prophylaxis
     Dosage: 30 MG, QD (120 MG)
     Route: 048
     Dates: start: 20161114, end: 201611
  179. LASIX [Concomitant]
     Active Substance: FUROSEMIDE
     Dosage: 40 MG, QD
     Route: 042
     Dates: start: 20161112, end: 20161114
  180. LAXAGOL [Concomitant]
     Indication: Product used for unknown indication
     Route: 065
     Dates: start: 20201120
  181. LAXAGOL [Concomitant]
     Route: 065
     Dates: start: 20201120
  182. LAXAGOL [Concomitant]
     Route: 065
     Dates: start: 20201120
  183. LAXAGOL [Concomitant]
     Route: 065
     Dates: start: 20201120
  184. LAXAGOL [Concomitant]
     Route: 065
     Dates: start: 20201120
  185. LEVETIRACETAM [Concomitant]
     Active Substance: LEVETIRACETAM
     Dosage: 750 MG, BID
     Route: 048
     Dates: start: 20220201
  186. LEVETIRACETAM [Concomitant]
     Active Substance: LEVETIRACETAM
     Indication: Epilepsy
     Route: 065
  187. LEVOCETIRIZINE DIHYDROCHLORIDE [Concomitant]
     Active Substance: LEVOCETIRIZINE DIHYDROCHLORIDE
     Indication: Product used for unknown indication
     Route: 065
     Dates: start: 20220801
  188. LEVOCETIRIZINE DIHYDROCHLORIDE [Concomitant]
     Active Substance: LEVOCETIRIZINE DIHYDROCHLORIDE
     Route: 065
     Dates: start: 20220801
  189. LEVOCETIRIZINE DIHYDROCHLORIDE [Concomitant]
     Active Substance: LEVOCETIRIZINE DIHYDROCHLORIDE
     Route: 065
     Dates: start: 20220801
  190. LEVOCETIRIZINE DIHYDROCHLORIDE [Concomitant]
     Active Substance: LEVOCETIRIZINE DIHYDROCHLORIDE
     Route: 065
     Dates: start: 20220801
  191. LEVOCETIRIZINE DIHYDROCHLORIDE [Concomitant]
     Active Substance: LEVOCETIRIZINE DIHYDROCHLORIDE
     Route: 065
     Dates: start: 20220801
  192. LEVOCETIRIZINE [Concomitant]
     Active Substance: LEVOCETIRIZINE
     Indication: Product used for unknown indication
     Route: 065
     Dates: start: 20220801
  193. LIPEGFILGRASTIM [Concomitant]
     Active Substance: LIPEGFILGRASTIM
     Indication: Prophylaxis
     Dosage: 6 MG, ONCE EVERY 3 WK
     Route: 058
     Dates: start: 20170113, end: 20170203
  194. MAGNESIUM CARBONATE\MAGNESIUM OXIDE [Concomitant]
     Active Substance: MAGNESIUM CARBONATE\MAGNESIUM OXIDE
     Indication: Product used for unknown indication
     Route: 065
  195. METOCLOPRAMIDE [Concomitant]
     Active Substance: METOCLOPRAMIDE
     Indication: Prophylaxis of nausea and vomiting
     Dosage: 10 MG, ONCE EVERY 3 WK
     Route: 042
     Dates: start: 20180205, end: 20190816
  196. MILNACIPRAN [Concomitant]
     Active Substance: MILNACIPRAN
     Indication: Product used for unknown indication
     Route: 065
     Dates: start: 20221123, end: 20230713
  197. MILNACIPRAN [Concomitant]
     Active Substance: MILNACIPRAN
     Route: 065
     Dates: start: 20221123, end: 20230713
  198. MILNACIPRAN [Concomitant]
     Active Substance: MILNACIPRAN
     Route: 065
     Dates: start: 20221123, end: 20230713
  199. MILNACIPRAN [Concomitant]
     Active Substance: MILNACIPRAN
     Route: 065
     Dates: start: 20221123, end: 20230713
  200. MILNACIPRAN [Concomitant]
     Active Substance: MILNACIPRAN
     Route: 065
     Dates: start: 20221123, end: 20230713
  201. MOVICOL [Concomitant]
     Active Substance: POLYETHYLENE GLYCOL 3350\POTASSIUM CHLORIDE\SODIUM BICARBONATE\SODIUM CHLORIDE
     Indication: Constipation prophylaxis
     Route: 048
     Dates: end: 201706
  202. MYSOLINE [Concomitant]
     Active Substance: PRIMIDONE
     Indication: Product used for unknown indication
     Route: 065
  203. ONDANSETRON HYDROCHLORIDE [Concomitant]
     Active Substance: ONDANSETRON HYDROCHLORIDE
     Indication: Breast cancer metastatic
     Route: 048
     Dates: start: 20181105
  204. ONDANSETRON HYDROCHLORIDE [Concomitant]
     Active Substance: ONDANSETRON HYDROCHLORIDE
     Indication: HER2 positive breast cancer
  205. GUAR GUM [Concomitant]
     Active Substance: GUAR GUM
     Indication: Prophylaxis
     Route: 048
     Dates: start: 20161102, end: 2016
  206. GUAR GUM [Concomitant]
     Active Substance: GUAR GUM
     Route: 065
     Dates: start: 20161102, end: 2016
  207. GUAR GUM [Concomitant]
     Active Substance: GUAR GUM
     Route: 065
     Dates: start: 20161102, end: 2016
  208. GUAR GUM [Concomitant]
     Active Substance: GUAR GUM
     Route: 065
     Dates: start: 20161102, end: 2016
  209. GUAR GUM [Concomitant]
     Active Substance: GUAR GUM
     Route: 065
     Dates: start: 20161102, end: 2016
  210. OSELTAMIVIR [Concomitant]
     Active Substance: OSELTAMIVIR
     Indication: Product used for unknown indication
     Route: 065
  211. OSELTAMIVIR [Concomitant]
     Active Substance: OSELTAMIVIR
     Route: 065
  212. OSELTAMIVIR [Concomitant]
     Active Substance: OSELTAMIVIR
     Route: 065
  213. OSELTAMIVIR [Concomitant]
     Active Substance: OSELTAMIVIR
     Route: 065
  214. OSELTAMIVIR [Concomitant]
     Active Substance: OSELTAMIVIR
     Route: 065
  215. PANTOPRAZOLE SODIUM [Concomitant]
     Active Substance: PANTOPRAZOLE SODIUM
     Indication: Product used for unknown indication
     Dosage: 40 MG, QD
     Route: 048
     Dates: start: 20161031, end: 20161123
  216. PANTOPRAZOLE SODIUM [Concomitant]
     Active Substance: PANTOPRAZOLE SODIUM
     Dosage: 40 MG, BID
     Route: 042
     Dates: start: 20161010, end: 20161018
  217. PANTOPRAZOLE SODIUM [Concomitant]
     Active Substance: PANTOPRAZOLE SODIUM
     Dosage: 40 MG, BID
     Route: 048
     Dates: start: 20161018, end: 20161030
  218. ACETAMINOPHEN [Concomitant]
     Active Substance: ACETAMINOPHEN
     Indication: Product used for unknown indication
     Route: 065
  219. Paspertin [Concomitant]
     Indication: Nausea
     Route: 042
     Dates: start: 20161113
  220. PERFALGAN [Concomitant]
     Active Substance: ACETAMINOPHEN
     Indication: Product used for unknown indication
     Dosage: 1 G, QD
     Route: 042
     Dates: start: 20161208, end: 20161212
  221. PERFALGAN [Concomitant]
     Active Substance: ACETAMINOPHEN
     Route: 065
  222. PERFALGAN [Concomitant]
     Active Substance: ACETAMINOPHEN
     Route: 065
  223. PERFALGAN [Concomitant]
     Active Substance: ACETAMINOPHEN
     Route: 065
  224. RAMIPRIL [Concomitant]
     Active Substance: RAMIPRIL
     Dosage: 15 MG
     Route: 048
     Dates: start: 20170227
  225. RAMIPRIL [Concomitant]
     Active Substance: RAMIPRIL
     Dosage: 15 MG, BID
     Route: 048
     Dates: start: 20170227
  226. RAMIPRIL [Concomitant]
     Active Substance: RAMIPRIL
     Dosage: 2.5 MG TWICE DAILY
     Route: 048
     Dates: start: 20161112, end: 20161221
  227. RAMIPRIL [Concomitant]
     Active Substance: RAMIPRIL
     Dosage: 2.5 MG, BID
     Route: 048
     Dates: start: 20161112, end: 20161221
  228. RAMIPRIL [Concomitant]
     Active Substance: RAMIPRIL
     Dosage: UNK, BID
     Route: 048
     Dates: start: 20161222, end: 20170226
  229. RAMIPRIL [Concomitant]
     Active Substance: RAMIPRIL
     Indication: Cardiovascular event prophylaxis
     Route: 065
     Dates: start: 20170227
  230. FILGRASTIM [Concomitant]
     Active Substance: FILGRASTIM
     Indication: Sleep disorder
     Route: 065
     Dates: start: 20230811, end: 20230924
  231. DEXIBUPROFEN [Concomitant]
     Active Substance: DEXIBUPROFEN
     Indication: Pain prophylaxis
     Dosage: 400 MG, TID (DATE OF LAST DOSE ADMINISTARTION: 25/NOV/2023)
     Route: 048
     Dates: start: 20210312
  232. SERTRALINE [Concomitant]
     Active Substance: SERTRALINE HYDROCHLORIDE
     Route: 048
     Dates: start: 20171016
  233. SERTRALINE [Concomitant]
     Active Substance: SERTRALINE HYDROCHLORIDE
     Indication: Depression
     Route: 048
     Dates: start: 20230714
  234. SERTRALINE [Concomitant]
     Active Substance: SERTRALINE HYDROCHLORIDE
     Indication: Product used for unknown indication
  235. AMINO ACIDS\DEXTROSE\ELECTROLYTES NOS\SOYBEAN OIL [Concomitant]
     Active Substance: AMINO ACIDS\DEXTROSE\ELECTROLYTES NOS\SOYBEAN OIL
     Indication: Product used for unknown indication
     Route: 065
  236. SPIRONOLACTONE [Concomitant]
     Active Substance: SPIRONOLACTONE
     Indication: Product used for unknown indication
     Route: 065
     Dates: start: 20230811
  237. SUCRALAN [Concomitant]
     Indication: Prophylaxis
     Route: 048
     Dates: start: 201612, end: 20161212
  238. TAZOBACTAM [Concomitant]
     Active Substance: TAZOBACTAM
     Indication: Product used for unknown indication
     Dosage: 4.5 G, QD (4.5 GRAM, QD)
     Route: 042
     Dates: start: 20161208, end: 20161212
  239. TRACEL [Concomitant]
     Indication: Product used for unknown indication
     Route: 065
  240. TRACEL [Concomitant]
     Route: 065
  241. TRACEL [Concomitant]
     Route: 065
  242. TRACEL [Concomitant]
     Route: 065
  243. TRACEL [Concomitant]
     Route: 065
  244. TRAZODONE HYDROCHLORIDE [Concomitant]
     Active Substance: TRAZODONE HYDROCHLORIDE
     Indication: Product used for unknown indication
     Route: 065
     Dates: start: 20221129
  245. VIMPAT [Concomitant]
     Active Substance: LACOSAMIDE
     Indication: Product used for unknown indication
     Route: 065
     Dates: start: 20230602
  246. ALPRAZOLAM [Concomitant]
     Active Substance: ALPRAZOLAM
     Indication: Product used for unknown indication
     Route: 048
     Dates: start: 20161117
  247. XARELTO [Concomitant]
     Active Substance: RIVAROXABAN
     Indication: Product used for unknown indication
     Dosage: 10 MG, QD
     Route: 048
     Dates: start: 20161026, end: 201612
  248. FILGRASTIM [Concomitant]
     Active Substance: FILGRASTIM
     Indication: Product used for unknown indication
     Dosage: 48 IU, ONCE EVERY 1 WK
     Route: 058
     Dates: start: 20161208, end: 20161211
  249. FILGRASTIM [Concomitant]
     Active Substance: FILGRASTIM
     Route: 065
     Dates: start: 20230811, end: 20230924
  250. ZOFRAN [Concomitant]
     Active Substance: ONDANSETRON HYDROCHLORIDE
     Indication: Prophylaxis of nausea and vomiting
     Route: 048
     Dates: start: 20161123, end: 20170204

REACTIONS (11)
  - Hemianopia [Recovered/Resolved]
  - White blood cell count decreased [Recovered/Resolved]
  - White blood cell count decreased [Not Recovered/Not Resolved]
  - Thrombocytopenia [Recovering/Resolving]
  - Thrombocytopenia [Recovering/Resolving]
  - Dehydration [Recovered/Resolved]
  - Nausea [Recovered/Resolved]
  - Nausea [Recovered/Resolved]
  - Headache [Recovered/Resolved]
  - Skin fissures [Recovered/Resolved]
  - Abdominal pain [Recovered/Resolved]

NARRATIVE: CASE EVENT DATE: 20180522
